FAERS Safety Report 5599954-X (Version None)
Quarter: 2008Q1

REPORT INFORMATION
  Report Type: 
  Country: None (occurrence: None)
  Receive Date: 20080123
  Receipt Date: 20080118
  Transmission Date: 20080703
  Serious: Yes (Hospitalization)
  Sender: FDA-Public Use
  Company Number: JP-NOVOPROD-262888

PATIENT
  Age: 73 Year
  Sex: Female

DRUGS (4)
  1. NOVOLIN R [Suspect]
     Indication: DIABETES MELLITUS
     Route: 058
  2. NOVOLIN R [Suspect]
     Indication: DIABETES MELLITUS
     Route: 058
  3. NOVORAPID CHU [Suspect]
     Indication: DIABETES MELLITUS
     Route: 058
     Dates: start: 20070101
  4. STARSIS [Concomitant]

REACTIONS (4)
  - ANTI-INSULIN ANTIBODY POSITIVE [None]
  - GLYCOSYLATED HAEMOGLOBIN INCREASED [None]
  - INJECTION SITE PRURITUS [None]
  - URTICARIA [None]
